FAERS Safety Report 20911103 (Version 1)
Quarter: 2022Q2

REPORT INFORMATION
  Report Type: Spontaneous
  Country: US (occurrence: US)
  Receive Date: 20220603
  Receipt Date: 20220603
  Transmission Date: 20220721
  Serious: Yes (Other)
  Sender: FDA-Public Use
  Company Number: US-FreseniusKabi-FK202207699

PATIENT
  Age: 66 Year
  Sex: Male

DRUGS (2)
  1. CYTARABINE [Suspect]
     Active Substance: CYTARABINE
     Indication: Acute leukaemia
  2. IDARUBICIN [Suspect]
     Active Substance: IDARUBICIN
     Indication: Acute leukaemia
     Route: 042

REACTIONS (4)
  - Ataxia [Unknown]
  - Atrial fibrillation [Unknown]
  - Pyrexia [Unknown]
  - Mental status changes [Unknown]
